FAERS Safety Report 6438032-4 (Version None)
Quarter: 2009Q4

REPORT INFORMATION
  Report Type: 
  Country: None (occurrence: None)
  Receive Date: 20091112
  Receipt Date: 20091103
  Transmission Date: 20100525
  Serious: Yes (Death)
  Sender: FDA-Public Use
  Company Number: US-PFIZER INC-2009282612

PATIENT
  Sex: Female

DRUGS (11)
  1. REVATIO [Suspect]
     Indication: PULMONARY HYPERTENSION
     Dosage: 20 MG, 3X/DAY
     Route: 048
     Dates: start: 20090501, end: 20090101
  2. REVATIO [Suspect]
     Indication: INTERSTITIAL LUNG DISEASE
  3. ZETIA [Concomitant]
     Dosage: 10 MG, 1X/DAY
  4. ACETYLSALICYLIC ACID [Concomitant]
     Dosage: 325 MG, 1X/DAY
  5. OS-CAL [Concomitant]
     Dosage: UNK
  6. INSULIN [Concomitant]
     Dosage: UNK
  7. MULTIPLE VITAMINS [Concomitant]
     Dosage: UNK
  8. ACTOS [Concomitant]
     Dosage: 45 MG, 1X/DAY
  9. EFFEXOR [Concomitant]
     Dosage: 37.5 MG, 1X/DAY
  10. FISH OIL [Concomitant]
     Dosage: 1000 MG, 2X/DAY
  11. OXYGEN [Concomitant]
     Dosage: 3 LPM

REACTIONS (1)
  - DEATH [None]
